FAERS Safety Report 25373036 (Version 1)
Quarter: 2025Q2

REPORT INFORMATION
  Report Type: Report from Study
  Country: EG (occurrence: EG)
  Receive Date: 20250529
  Receipt Date: 20250529
  Transmission Date: 20250717
  Serious: Yes (Other)
  Sender: MYLAN
  Company Number: EG-MYLANLABS-2025M1045110

PATIENT
  Sex: Female

DRUGS (8)
  1. METHOTREXATE [Suspect]
     Active Substance: METHOTREXATE
     Indication: Gestational trophoblastic tumour
     Dosage: 50 MILLIGRAM, QD (ON DAYS 1, 3, 5, AND 7)
  2. METHOTREXATE [Suspect]
     Active Substance: METHOTREXATE
     Dosage: 50 MILLIGRAM, QD (ON DAYS 1, 3, 5, AND 7)
     Route: 030
  3. METHOTREXATE [Suspect]
     Active Substance: METHOTREXATE
     Dosage: 50 MILLIGRAM, QD (ON DAYS 1, 3, 5, AND 7)
     Route: 030
  4. METHOTREXATE [Suspect]
     Active Substance: METHOTREXATE
     Dosage: 50 MILLIGRAM, QD (ON DAYS 1, 3, 5, AND 7)
  5. LEUCOVORIN [Suspect]
     Active Substance: LEUCOVORIN\LEUCOVORIN CALCIUM
     Indication: Gestational trophoblastic tumour
     Dosage: 15 MILLIGRAM, QD (ON DAYS 2, 4, 6, AND 8)
  6. LEUCOVORIN [Suspect]
     Active Substance: LEUCOVORIN\LEUCOVORIN CALCIUM
     Dosage: 15 MILLIGRAM, QD (ON DAYS 2, 4, 6, AND 8)
     Route: 030
  7. LEUCOVORIN [Suspect]
     Active Substance: LEUCOVORIN\LEUCOVORIN CALCIUM
     Dosage: 15 MILLIGRAM, QD (ON DAYS 2, 4, 6, AND 8)
     Route: 030
  8. LEUCOVORIN [Suspect]
     Active Substance: LEUCOVORIN\LEUCOVORIN CALCIUM
     Dosage: 15 MILLIGRAM, QD (ON DAYS 2, 4, 6, AND 8)

REACTIONS (2)
  - Treatment failure [Unknown]
  - Off label use [Unknown]
